FAERS Safety Report 5161111-9 (Version None)
Quarter: 2006Q4

REPORT INFORMATION
  Report Type: 
  Country: None (occurrence: None)
  Receive Date: 20061130
  Receipt Date: 20061025
  Transmission Date: 20070319
  Serious: Yes (Hospitalization)
  Sender: FDA-Public Use
  Company Number: PHEH2006US13378

PATIENT
  Age: 83 Year
  Sex: Male

DRUGS (3)
  1. GLEEVEC [Suspect]
     Indication: CHRONIC MYELOID LEUKAEMIA
     Dosage: 400 MG, QD
     Route: 048
     Dates: start: 20050201, end: 20060901
  2. LISINOPRIL [Concomitant]
     Indication: HYPERTENSION
     Dosage: 20 MG, QD
     Route: 048
  3. ARANESP [Concomitant]
     Indication: ANAEMIA
     Dosage: 150-200 MCG QOW
     Route: 058
     Dates: start: 20050725

REACTIONS (6)
  - COOMBS DIRECT TEST POSITIVE [None]
  - HAEMATOCRIT DECREASED [None]
  - HAEMOGLOBIN DECREASED [None]
  - HAEMOLYTIC ANAEMIA [None]
  - HYPERBILIRUBINAEMIA [None]
  - RED BLOOD CELL COUNT DECREASED [None]
